FAERS Safety Report 7940382-7 (Version None)
Quarter: 2011Q4

REPORT INFORMATION
  Report Type: 
  Country: None (occurrence: None)
  Receive Date: 20111127
  Receipt Date: 20111011
  Transmission Date: 20120403
  Serious: Yes (Hospitalization)
  Sender: FDA-Public Use
  Company Number: TR-MILLENNIUM PHARMACEUTICALS, INC.-2011-05954

PATIENT

DRUGS (6)
  1. VELCADE [Suspect]
     Indication: MULTIPLE MYELOMA
     Dosage: 1.3 MG/M2, UNK
     Route: 065
     Dates: start: 20100115
  2. DEXAMETHASONE [Suspect]
     Indication: MULTIPLE MYELOMA
     Dosage: 100 MG, UNK
     Route: 065
     Dates: start: 20100115
  3. VELCADE [Suspect]
     Dosage: 1 MG/M2, UNK
     Route: 065
     Dates: start: 20100603
  4. MELPHALAN HYDROCHLORIDE [Suspect]
     Indication: MULTIPLE MYELOMA
     Dosage: 8 MG, UNK
     Route: 065
     Dates: start: 20100115
  5. METHYLPREDNISOLONE [Suspect]
     Indication: MULTIPLE MYELOMA
     Dosage: 80 MG, UNK
     Route: 065
     Dates: start: 20100226
  6. DEXAMETHASONE [Suspect]
     Dosage: 40 MG, UNK
     Route: 065
     Dates: start: 20100603

REACTIONS (7)
  - PNEUMONIA [None]
  - HEMIPARESIS [None]
  - LEUKOPENIA [None]
  - MYALGIA [None]
  - POLYNEUROPATHY [None]
  - HEPATITIS TOXIC [None]
  - HYPOAESTHESIA [None]
